FAERS Safety Report 6395864-9 (Version None)
Quarter: 2009Q4

REPORT INFORMATION
  Report Type: 
  Country: None (occurrence: None)
  Receive Date: 20091009
  Receipt Date: 20090812
  Transmission Date: 20100525
  Serious: No
  Sender: FDA-Public Use
  Company Number: A0799126A

PATIENT
  Age: 54 Year
  Sex: Female

DRUGS (10)
  1. TYKERB [Suspect]
     Indication: BREAST CANCER
     Dosage: 5TAB PER DAY
     Route: 048
     Dates: start: 20090717
  2. OXYCONTIN [Concomitant]
  3. CODEINE [Concomitant]
  4. POTASSIUM CHLORIDE [Concomitant]
     Route: 048
  5. STOOL SOFTENER [Concomitant]
  6. PANTOPRAZOLE SODIUM [Concomitant]
  7. BETAMETHASONE [Concomitant]
  8. XELODA [Concomitant]
  9. ZOLPIDEM [Concomitant]
     Indication: SLEEP DISORDER
  10. FLUTICASONE PROPIONATE [Concomitant]

REACTIONS (2)
  - DRY SKIN [None]
  - OEDEMA PERIPHERAL [None]
